FAERS Safety Report 22608260 (Version 1)
Quarter: 2023Q2

REPORT INFORMATION
  Report Type: Spontaneous
  Country: US (occurrence: US)
  Receive Date: 20230616
  Receipt Date: 20230616
  Transmission Date: 20230722
  Serious: No
  Sender: FDA-Public Use
  Company Number: US-GLAXOSMITHKLINE-US2023AMR083391

PATIENT
  Sex: Female

DRUGS (1)
  1. ZEJULA [Suspect]
     Active Substance: NIRAPARIB
     Indication: Ovarian cancer
     Dosage: 100 MG, QD (3 CAPS)
     Route: 048
     Dates: start: 20230611

REACTIONS (2)
  - Pain [Unknown]
  - Fatigue [Unknown]

NARRATIVE: CASE EVENT DATE: 20230611
